FAERS Safety Report 17955967 (Version 2)
Quarter: 2021Q3

REPORT INFORMATION
  Report Type: Spontaneous
  Country: US (occurrence: US)
  Receive Date: 20200629
  Receipt Date: 20210727
  Transmission Date: 20211014
  Serious: No
  Sender: FDA-Public Use
  Company Number: US-PFIZER INC-2020248382

PATIENT
  Age: 47 Year
  Sex: Male

DRUGS (1)
  1. ALPRAZOLAM. [Suspect]
     Active Substance: ALPRAZOLAM
     Dosage: UNK

REACTIONS (2)
  - Drug hypersensitivity [Unknown]
  - Urticaria [Unknown]
